FAERS Safety Report 9847035 (Version 1)
Quarter: 2013Q4

REPORT INFORMATION
  Report Type: Spontaneous
  Country: US (occurrence: None)
  Receive Date: 20131223
  Receipt Date: 20131223
  Transmission Date: 20140711
  Serious: Yes (Other)
  Sender: FDA-Public Use
  Company Number: SYM-2013-03086

PATIENT
  Age: 46 Year
  Sex: Male

DRUGS (1)
  1. XENAZINE (TETRABENAZINE) (25 MILLIGRAM) (TETRABENAZINE) [Suspect]
     Indication: DYSKINESIA
     Dosage: 3 IN 1 D, ORAL
     Route: 048
     Dates: start: 20100910

REACTIONS (1)
  - Depression [None]
